FAERS Safety Report 16172768 (Version 1)
Quarter: 2019Q2

REPORT INFORMATION
  Report Type: Report from Study
  Country: US (occurrence: US)
  Receive Date: 20190409
  Receipt Date: 20190409
  Transmission Date: 20190711
  Serious: Yes (Death, Other)
  Sender: FDA-Public Use
  Company Number: US-AUROBINDO-AUR-APL-2019-018259

PATIENT

DRUGS (2)
  1. LIDOCAINE. [Suspect]
     Active Substance: LIDOCAINE
     Indication: ENDOTRACHEAL INTUBATION
     Dosage: UNK
     Route: 065
  2. BENZOCAINE. [Suspect]
     Active Substance: BENZOCAINE
     Indication: ENDOTRACHEAL INTUBATION
     Dosage: UNK
     Route: 065

REACTIONS (1)
  - Methaemoglobinaemia [Fatal]
